FAERS Safety Report 17977936 (Version 1)
Quarter: 2020Q3

REPORT INFORMATION
  Report Type: Spontaneous
  Country: DE (occurrence: DE)
  Receive Date: 20200703
  Receipt Date: 20200703
  Transmission Date: 20201103
  Serious: Yes (Hospitalization)
  Sender: FDA-Public Use
  Company Number: DE-LEADINGPHARMA-DE-2020LEALIT00105

PATIENT
  Age: 73 Year

DRUGS (4)
  1. APIXABAN [Concomitant]
     Active Substance: APIXABAN
     Indication: POLYCYTHAEMIA VERA
     Route: 065
  2. HYDROXYUREA CAPSULES USP [Suspect]
     Active Substance: HYDROXYUREA
     Indication: POLYCYTHAEMIA VERA
     Route: 065
  3. TINZAPARIN SODIUM [Concomitant]
     Active Substance: TINZAPARIN SODIUM
     Indication: WOUND
     Route: 065
  4. HYDROXYUREA CAPSULES USP [Suspect]
     Active Substance: HYDROXYUREA
     Indication: MYELOPROLIFERATIVE NEOPLASM
     Dosage: 500MG DAILY FOR FIRST 6 MONTHS
     Route: 065

REACTIONS (1)
  - Ulcer [Recovered/Resolved]
